FAERS Safety Report 7619517-1 (Version None)
Quarter: 2011Q3

REPORT INFORMATION
  Report Type: 
  Country: None (occurrence: None)
  Receive Date: 20110719
  Receipt Date: 20110711
  Transmission Date: 20111222
  Serious: No
  Sender: FDA-Public Use
  Company Number: US-ROXANE LABORATORIES, INC.-2011-RO-00890RO

PATIENT
  Sex: Male
  Weight: 91 kg

DRUGS (19)
  1. FUROSEMIDE [Concomitant]
     Indication: BLOOD PRESSURE
  2. SIMVASTATIN [Concomitant]
     Indication: BLOOD CHOLESTEROL
  3. MULTIVITAMINERAL [Concomitant]
     Indication: VITAMIN SUPPLEMENTATION
  4. ASPIRIN [Concomitant]
     Indication: PULMONARY VASCULAR DISORDER
     Dosage: 81 MG
  5. AMLODIPINE [Concomitant]
     Indication: BLOOD PRESSURE
     Dosage: 10 MG
  6. TAMSULOSIN HCL [Concomitant]
     Indication: PROSTATOMEGALY
  7. LOSARTAN [Concomitant]
     Indication: RENAL DISORDER
     Dosage: 50 MG
  8. ALBUTEROL SULFATE AUTOHALER [Concomitant]
  9. GUAIFENESIN [Concomitant]
     Indication: RESPIRATORY TRACT CONGESTION
  10. ACARBOSE [Suspect]
     Indication: DIABETES MELLITUS
     Dosage: 75 MG
     Route: 048
     Dates: start: 20110422, end: 20110519
  11. LOSARTAN [Concomitant]
     Indication: BLOOD PRESSURE
  12. SPIRONOLACTONE [Concomitant]
     Indication: FLUID RETENTION
     Dosage: 25 MG
  13. SPIRONOLACTONE [Concomitant]
     Indication: BLOOD PRESSURE
  14. FUROSEMIDE [Concomitant]
     Indication: FLUID RETENTION
     Dosage: 20 MG
  15. CALCIUM CARBONATE [Concomitant]
     Indication: MINERAL SUPPLEMENTATION
  16. DOCUSATE [Concomitant]
     Indication: ABNORMAL FAECES
  17. GLIPIZIDE [Concomitant]
     Indication: BLOOD GLUCOSE ABNORMAL
  18. FERROUS SULFATE TAB [Concomitant]
     Indication: MINERAL SUPPLEMENTATION
  19. MOMETASONE FUROATE [Concomitant]

REACTIONS (7)
  - CONSTIPATION [None]
  - DIARRHOEA [None]
  - ANORECTAL DISCOMFORT [None]
  - FAECALOMA [None]
  - RASH [None]
  - INFECTION [None]
  - FLATULENCE [None]
